FAERS Safety Report 8261274-2 (Version None)
Quarter: 2012Q2

REPORT INFORMATION
  Report Type: 
  Country: None (occurrence: None)
  Receive Date: 20120405
  Receipt Date: 20120326
  Transmission Date: 20120825
  Serious: Yes (Other)
  Sender: FDA-Public Use
  Company Number: US-JNJFOC-20120312746

PATIENT
  Sex: Female
  Weight: 71.67 kg

DRUGS (8)
  1. CELEXA [Concomitant]
     Indication: DEPRESSION
     Route: 048
  2. TOPAMAX [Suspect]
     Indication: FIBROMYALGIA
     Route: 048
     Dates: start: 20110101
  3. SUMATRIPTAN SUCCINATE [Concomitant]
     Indication: HEADACHE
     Route: 048
  4. UNKNOWN MEDICATION [Suspect]
     Indication: COUGH
     Route: 055
     Dates: start: 20111101
  5. NAPROXEN [Concomitant]
     Indication: HEADACHE
     Route: 048
  6. TOPAMAX [Suspect]
     Indication: EATING DISORDER
     Route: 048
     Dates: start: 20110101
  7. TOPAMAX [Suspect]
     Indication: MIGRAINE
     Route: 048
     Dates: start: 20110101
  8. STEROIDS NOS [Suspect]
     Indication: PRODUCT USED FOR UNKNOWN INDICATION
     Route: 065

REACTIONS (4)
  - MIGRAINE [None]
  - NASOPHARYNGITIS [None]
  - SPASMODIC DYSPHONIA [None]
  - IMMUNE SYSTEM DISORDER [None]
